FAERS Safety Report 9956780 (Version 1)
Quarter: 2014Q1

REPORT INFORMATION
  Report Type: Report from Study
  Country: US (occurrence: US)
  Receive Date: 20140304
  Receipt Date: 20140304
  Transmission Date: 20141002
  Serious: No
  Sender: FDA-Public Use
  Company Number: US-ABBVIE-13P-163-1096261-00

PATIENT
  Sex: Female
  Weight: 57.66 kg

DRUGS (2)
  1. HUMIRA [Suspect]
     Indication: ANKYLOSING SPONDYLITIS
     Dosage: PENS
     Route: 058
     Dates: start: 2007, end: 2007
  2. HUMIRA [Suspect]
     Route: 058
     Dates: start: 2007, end: 201207

REACTIONS (1)
  - Injection site urticaria [Recovered/Resolved]
